FAERS Safety Report 6720554-X (Version None)
Quarter: 2010Q2

REPORT INFORMATION
  Report Type: 
  Country: None (occurrence: None)
  Receive Date: 20100511
  Receipt Date: 20100511
  Transmission Date: 20101027
  Serious: No
  Sender: FDA-Public Use
  Company Number: None

PATIENT
  Age: 82 Year
  Sex: Female
  Weight: 135 kg

DRUGS (1)
  1. HEALTHSENSE LOW DOSE ASPRIN 81 MG. GOODLITSVILE, TENN. 1-800-309-9030 [Suspect]
     Indication: CARDIAC DISORDER
     Dosage: 1 DAILY 81 MG.
     Dates: start: 20091201, end: 20100201

REACTIONS (4)
  - FEELING ABNORMAL [None]
  - MALAISE [None]
  - PRODUCT ODOUR ABNORMAL [None]
  - PRODUCT QUALITY ISSUE [None]
